FAERS Safety Report 13027662 (Version 1)
Quarter: 2016Q4

REPORT INFORMATION
  Report Type: Spontaneous
  Country: GB (occurrence: GB)
  Receive Date: 20161214
  Receipt Date: 20161214
  Transmission Date: 20170207
  Serious: Yes (Other)
  Sender: FDA-Public Use
  Company Number: GB-TEVA-717908ACC

PATIENT
  Age: 48 Year
  Sex: Male
  Weight: 68.8 kg

DRUGS (32)
  1. MORPHINE [Suspect]
     Active Substance: MORPHINE
     Indication: PRODUCT USED FOR UNKNOWN INDICATION
     Dosage: AT 12:00 H
     Route: 065
     Dates: start: 20160817, end: 20160817
  2. MORPHINE [Suspect]
     Active Substance: MORPHINE
     Route: 065
     Dates: start: 20150528
  3. MIDAZOLAM [Suspect]
     Active Substance: MIDAZOLAM\MIDAZOLAM HYDROCHLORIDE
     Indication: ANAESTHESIA PROCEDURE
     Route: 065
     Dates: start: 20160702
  4. PROPOFOL. [Suspect]
     Active Substance: PROPOFOL
     Dosage: INDUCTION
     Route: 065
     Dates: start: 20160817, end: 20160817
  5. FENTANYL. [Suspect]
     Active Substance: FENTANYL
     Route: 065
     Dates: start: 20160702
  6. ONDANSETRON [Suspect]
     Active Substance: ONDANSETRON
     Route: 065
     Dates: start: 20150528
  7. PARACETAMOL [Suspect]
     Active Substance: ACETAMINOPHEN
     Dosage: AT 09:45 H
     Route: 065
     Dates: start: 20160817, end: 20160817
  8. FENTANYL. [Suspect]
     Active Substance: FENTANYL
     Indication: ANAESTHESIA PROCEDURE
     Route: 065
     Dates: start: 20150528
  9. DESFLURANE. [Suspect]
     Active Substance: DESFLURANE
     Indication: ANAESTHESIA PROCEDURE
     Dosage: MAINTENANCE
     Route: 055
     Dates: start: 20160817, end: 20160817
  10. MIDAZOLAM [Suspect]
     Active Substance: MIDAZOLAM\MIDAZOLAM HYDROCHLORIDE
     Route: 065
     Dates: start: 20150528
  11. FENTANYL. [Suspect]
     Active Substance: FENTANYL
     Dosage: PRE-INDUCTION
     Route: 065
     Dates: start: 20160817, end: 20160817
  12. ONDANSETRON [Suspect]
     Active Substance: ONDANSETRON
     Indication: PRODUCT USED FOR UNKNOWN INDICATION
     Route: 065
     Dates: start: 20160702
  13. ROCURONIUM [Suspect]
     Active Substance: ROCURONIUM BROMIDE
     Indication: ANAESTHESIA PROCEDURE
     Dosage: INDUCTION
     Route: 065
     Dates: start: 20160817, end: 20160817
  14. ATRACURIUM [Suspect]
     Active Substance: ATRACURIUM
     Indication: ANAESTHESIA PROCEDURE
     Route: 065
     Dates: start: 20150528
  15. ONDANSETRON [Suspect]
     Active Substance: ONDANSETRON
     Dosage: AT 12:00 H
     Route: 065
     Dates: start: 20160817, end: 20160817
  16. SEVOFLURANE BAXTER, 100% INHALATION VAPOUR, LIQUID [Suspect]
     Active Substance: SEVOFLURANE
     Route: 065
     Dates: start: 20150528
  17. SEVOFLURANE BAXTER, 100% INHALATION VAPOUR, LIQUID [Suspect]
     Active Substance: SEVOFLURANE
     Route: 065
     Dates: start: 20160702
  18. DEXAMETHASONE. [Suspect]
     Active Substance: DEXAMETHASONE
     Indication: PRODUCT USED FOR UNKNOWN INDICATION
     Dosage: AT 09:15 H
     Route: 065
     Dates: start: 20160817, end: 20160817
  19. DEXAMETHASONE. [Suspect]
     Active Substance: DEXAMETHASONE
     Route: 065
     Dates: start: 20150528
  20. DICLOFENAC [Suspect]
     Active Substance: DICLOFENAC
     Indication: PRODUCT USED FOR UNKNOWN INDICATION
     Dosage: AT 10:00 H
     Route: 065
     Dates: start: 20160817, end: 20160817
  21. PARACETAMOL [Suspect]
     Active Substance: ACETAMINOPHEN
     Indication: PRODUCT USED FOR UNKNOWN INDICATION
     Route: 065
     Dates: start: 20160702
  22. PROPOFOL. [Suspect]
     Active Substance: PROPOFOL
     Indication: ANAESTHESIA PROCEDURE
     Route: 065
     Dates: start: 20150528
  23. PROPOFOL. [Suspect]
     Active Substance: PROPOFOL
     Dosage: PRE-INDUCTION
     Route: 065
     Dates: start: 20160817, end: 20160817
  24. SERETIDE [Concomitant]
     Active Substance: FLUTICASONE PROPIONATE\SALMETEROL XINAFOATE
     Indication: PRODUCT USED FOR UNKNOWN INDICATION
     Route: 065
  25. REMIFENTANIL [Suspect]
     Active Substance: REMIFENTANIL
     Indication: PRODUCT USED FOR UNKNOWN INDICATION
     Dosage: STRENGTH: 2MG/40ML, MULTIPLE DOSES THROUGHOUT SURGERY
     Route: 065
     Dates: start: 20160817, end: 20160817
  26. SEVOFLURANE BAXTER, 100% INHALATION VAPOUR, LIQUID [Suspect]
     Active Substance: SEVOFLURANE
     Indication: ANAESTHESIA PROCEDURE
     Dosage: MAINTENANCE
     Route: 065
     Dates: start: 20160817, end: 20160817
  27. DEXAMETHASONE. [Suspect]
     Active Substance: DEXAMETHASONE
     Route: 065
     Dates: start: 20160702
  28. PARACETAMOL [Suspect]
     Active Substance: ACETAMINOPHEN
     Route: 065
     Dates: start: 20150528
  29. TIOTROPIUM [Concomitant]
     Active Substance: TIOTROPIUM
     Indication: PRODUCT USED FOR UNKNOWN INDICATION
     Route: 065
  30. EPHEDRINE. [Suspect]
     Active Substance: EPHEDRINE
     Indication: PRODUCT USED FOR UNKNOWN INDICATION
     Dosage: AT 12:00 H
     Route: 065
     Dates: start: 20160817, end: 20160817
  31. PROPOFOL. [Suspect]
     Active Substance: PROPOFOL
     Route: 065
     Dates: start: 20160702
  32. SALBUTAMOL [Concomitant]
     Active Substance: ALBUTEROL
     Indication: PRODUCT USED FOR UNKNOWN INDICATION
     Route: 065

REACTIONS (1)
  - Hyperkalaemia [Recovered/Resolved]

NARRATIVE: CASE EVENT DATE: 20160817
